FAERS Safety Report 9378594 (Version 5)
Quarter: 2014Q3

REPORT INFORMATION
  Report Type: Report from Study
  Country: CA (occurrence: CA)
  Receive Date: 20130702
  Receipt Date: 20140930
  Transmission Date: 20150326
  Serious: Yes (Hospitalization, Other)
  Sender: FDA-Public Use
  Company Number: CA-ROCHE-1241042

PATIENT
  Age: 47 Year
  Sex: Male

DRUGS (1)
  1. LUCENTIS [Suspect]
     Active Substance: RANIBIZUMAB
     Indication: DIABETIC RETINAL OEDEMA
     Dosage: MOST RECENT DOSE ON 25/JUL/2013
     Route: 050

REACTIONS (7)
  - Blindness transient [Recovering/Resolving]
  - Suture rupture [Unknown]
  - Diabetic retinopathy [Recovered/Resolved]
  - Visual impairment [Recovered/Resolved]
  - Malaise [Unknown]
  - Diabetic foot [Unknown]
  - Vitreous haemorrhage [Recovered/Resolved]

NARRATIVE: CASE EVENT DATE: 20130611
